FAERS Safety Report 9032070 (Version 1)
Quarter: 2013Q1

REPORT INFORMATION
  Report Type: Spontaneous
  Country: US (occurrence: US)
  Receive Date: 20130125
  Receipt Date: 20130125
  Transmission Date: 20140127
  Serious: No
  Sender: FDA-Public Use
  Company Number: US-PFIZER INC-2013028715

PATIENT
  Sex: Female

DRUGS (2)
  1. AROMASIN [Suspect]
     Dosage: UNK
  2. AFINITOR [Suspect]
     Dosage: UNK

REACTIONS (2)
  - Disease progression [Unknown]
  - Inflammatory carcinoma of the breast [Unknown]
